FAERS Safety Report 14746064 (Version 5)
Quarter: 2018Q3

REPORT INFORMATION
  Report Type: Report from Study
  Country: US (occurrence: US)
  Receive Date: 20180411
  Receipt Date: 20180720
  Transmission Date: 20181010
  Serious: Yes (Other)
  Sender: FDA-Public Use
  Company Number: US-PFIZER INC-2018120583

PATIENT
  Age: 78 Year
  Sex: Female

DRUGS (2)
  1. IBRANCE [Suspect]
     Active Substance: PALBOCICLIB
     Indication: BREAST CANCER
     Dosage: 125 MG, CYCLIC(ONCE DAILY, 21 DAYS ON, FOLLOWED BY 7 DAYS REST) (3WEEKS ON/1 WEEK OFF)
     Route: 048
     Dates: start: 20180227, end: 20180327
  2. IBRANCE [Suspect]
     Active Substance: PALBOCICLIB
     Dosage: 100 MG, CYCLIC (ONCE DAILY,21DAYS ON,FOLLOWED BY 7 DAYS REST/OFF)(3WEEKS ON/1 WEEK OFF)
     Route: 048
     Dates: start: 20180328

REACTIONS (16)
  - Alopecia [Recovering/Resolving]
  - Dry eye [Not Recovered/Not Resolved]
  - Upper respiratory tract congestion [Recovering/Resolving]
  - Renal function test abnormal [Unknown]
  - Dark circles under eyes [Unknown]
  - Fatigue [Recovering/Resolving]
  - Diarrhoea [Unknown]
  - Eyelid pain [Unknown]
  - Headache [Recovering/Resolving]
  - Renal impairment [Unknown]
  - Eye irritation [Unknown]
  - White blood cell count decreased [Unknown]
  - Vision blurred [Unknown]
  - Condition aggravated [Not Recovered/Not Resolved]
  - Visual impairment [Not Recovered/Not Resolved]
  - Productive cough [Recovering/Resolving]

NARRATIVE: CASE EVENT DATE: 2018
